FAERS Safety Report 6289071-8 (Version None)
Quarter: 2009Q3

REPORT INFORMATION
  Report Type: 
  Country: None (occurrence: None)
  Receive Date: 20090728
  Receipt Date: 20090721
  Transmission Date: 20100115
  Serious: Yes (Hospitalization)
  Sender: FDA-Public Use
  Company Number: SPV1-2009-01510

PATIENT
  Age: 81 Year
  Sex: Male
  Weight: 79.4 kg

DRUGS (2)
  1. PENTASA [Suspect]
     Indication: COLITIS ULCERATIVE
     Dosage: 1000 MG, 4X/DAY:QID, ORAL
     Route: 048
  2. PENTASA [Suspect]
     Indication: CROHN'S DISEASE
     Dosage: 1000 MG, 4X/DAY:QID, ORAL
     Route: 048

REACTIONS (7)
  - CROHN'S DISEASE [None]
  - HYPOVOLAEMIA [None]
  - MALNUTRITION [None]
  - SINUSITIS [None]
  - UNEVALUABLE EVENT [None]
  - URINARY TRACT INFECTION [None]
  - VOMITING [None]
